FAERS Safety Report 14021823 (Version 3)
Quarter: 2018Q1

REPORT INFORMATION
  Report Type: Report from Study
  Country: US (occurrence: US)
  Receive Date: 20170928
  Receipt Date: 20180327
  Transmission Date: 20180508
  Serious: No
  Sender: FDA-Public Use
  Company Number: US-CLOVIS ONCOLOGY-CLO-2017-001054

PATIENT
  Sex: Female

DRUGS (1)
  1. RUBRACA [Suspect]
     Active Substance: RUCAPARIB CAMSYLATE
     Indication: OVARIAN CANCER
     Dosage: 300 MG, BID
     Route: 048
     Dates: end: 201712

REACTIONS (4)
  - Drug ineffective [Not Recovered/Not Resolved]
  - Malignant neoplasm progression [Unknown]
  - Abdominal pain upper [Not Recovered/Not Resolved]
  - Underdose [Unknown]
